FAERS Safety Report 13766548 (Version 1)
Quarter: 2017Q3

REPORT INFORMATION
  Report Type: Spontaneous
  Country: US (occurrence: US)
  Receive Date: 20170718
  Receipt Date: 20170718
  Transmission Date: 20171127
  Serious: Yes (Other)
  Sender: FDA-Public Use
  Company Number: None

PATIENT
  Age: 77 Year
  Sex: Male
  Weight: 87.3 kg

DRUGS (11)
  1. DARZALEX [Concomitant]
     Active Substance: DARATUMUMAB
  2. LUMIGAN [Concomitant]
     Active Substance: BIMATOPROST
  3. NINLARO [Suspect]
     Active Substance: IXAZOMIB
     Indication: PLASMA CELL MYELOMA
     Dosage: ?          OTHER DOSE:MG;OTHER FREQUENCY:ONCE WEEKLY;?
     Route: 048
     Dates: start: 20160401, end: 20170710
  4. ASPIR-81 [Concomitant]
     Active Substance: ASPIRIN
  5. DEXAMETHASONE. [Concomitant]
     Active Substance: DEXAMETHASONE
  6. SIMVASTATIN. [Concomitant]
     Active Substance: SIMVASTATIN
  7. TIMOLOL MALEATE. [Concomitant]
     Active Substance: TIMOLOL MALEATE
  8. VALSARTAN AND HYDROCHLOROTHIAZIDE [Concomitant]
     Active Substance: HYDROCHLOROTHIAZIDE\VALSARTAN
  9. ACYCLOVIR. [Concomitant]
     Active Substance: ACYCLOVIR
  10. ONDANSETRON [Concomitant]
     Active Substance: ONDANSETRON
  11. VITAMIN D [Concomitant]
     Active Substance: CHOLECALCIFEROL

REACTIONS (1)
  - Disease progression [None]
